FAERS Safety Report 4586269-1 (Version None)
Quarter: 2005Q1

REPORT INFORMATION
  Report Type: 
  Country: None (occurrence: None)
  Receive Date: 20050217
  Receipt Date: 20030130
  Transmission Date: 20050727
  Serious: Yes (Hospitalization, Disabling, Other)
  Sender: FDA-Public Use
  Company Number: US-MERCK-0302USA00066

PATIENT
  Age: 63 Year
  Sex: Male
  Weight: 102 kg

DRUGS (37)
  1. VIOXX [Suspect]
     Indication: BACK PAIN
     Route: 048
     Dates: start: 20000621, end: 20000928
  2. VIOXX [Suspect]
     Route: 048
     Dates: start: 20010101, end: 20011026
  3. VIOXX [Suspect]
     Route: 048
     Dates: start: 20000214, end: 20000601
  4. VIOXX [Suspect]
     Route: 048
     Dates: start: 20020101
  5. VIOXX [Suspect]
     Route: 048
     Dates: start: 20000621, end: 20000928
  6. VIOXX [Suspect]
     Route: 048
  7. VIOXX [Suspect]
     Indication: PERICARDITIS
     Route: 048
     Dates: start: 20000621, end: 20000928
  8. VIOXX [Suspect]
     Route: 048
     Dates: start: 20010101, end: 20011026
  9. VIOXX [Suspect]
     Route: 048
     Dates: start: 20000214, end: 20000601
  10. VIOXX [Suspect]
     Route: 048
     Dates: start: 20020101
  11. VIOXX [Suspect]
     Route: 048
     Dates: start: 20000621, end: 20000928
  12. VIOXX [Suspect]
     Route: 048
  13. ZOLOFT [Concomitant]
     Route: 065
  14. TENORMIN [Concomitant]
     Route: 065
  15. TENORMIN [Concomitant]
     Route: 065
  16. TEMAZEPAM [Concomitant]
     Route: 065
  17. TAGAMET [Concomitant]
     Route: 065
  18. ASPIRIN [Concomitant]
     Route: 065
  19. AUGMENTIN '125' [Concomitant]
     Route: 065
  20. ZOCOR [Concomitant]
     Route: 048
  21. MOTRIN [Concomitant]
     Route: 048
  22. PLAVIX [Concomitant]
     Route: 048
  23. RELAFEN [Concomitant]
     Route: 065
  24. NITROSTAT [Concomitant]
     Route: 065
  25. ULTRAM [Concomitant]
     Route: 048
  26. ULTRACET [Concomitant]
     Route: 065
  27. ULTRACET [Concomitant]
     Route: 065
  28. CELEBREX [Concomitant]
     Route: 065
  29. CELEBREX [Concomitant]
     Route: 065
  30. TRAZODONE HYDROCHLORIDE [Concomitant]
     Route: 065
  31. TRAZODONE HYDROCHLORIDE [Concomitant]
     Route: 065
  32. TRAZODONE HYDROCHLORIDE [Concomitant]
     Route: 065
  33. BEXTRA [Concomitant]
     Route: 065
  34. BEXTRA [Concomitant]
     Route: 065
  35. FLEXERIL [Concomitant]
     Route: 065
  36. FLEXERIL [Concomitant]
     Route: 065
  37. PAXIL [Concomitant]
     Route: 065

REACTIONS (77)
  - ABSCESS LIMB [None]
  - ADVERSE EVENT [None]
  - AGITATION [None]
  - ANGINA PECTORIS [None]
  - ANGINA UNSTABLE [None]
  - ANXIETY [None]
  - ARTHRALGIA [None]
  - ASTIGMATISM [None]
  - BACK PAIN [None]
  - BLOOD GLUCOSE INCREASED [None]
  - BLOOD PH INCREASED [None]
  - CARPAL TUNNEL SYNDROME [None]
  - CATARACT [None]
  - CERVICAL SPINAL STENOSIS [None]
  - CERVICOBRACHIAL SYNDROME [None]
  - CHEST PAIN [None]
  - CORNEAL DISORDER [None]
  - CORONARY ARTERY ATHEROSCLEROSIS [None]
  - CORONARY ARTERY DISEASE [None]
  - CORONARY ARTERY OCCLUSION [None]
  - CORONARY ARTERY STENOSIS [None]
  - CORONARY OSTIAL STENOSIS [None]
  - CYSTITIS [None]
  - DEPRESSION [None]
  - DIASTOLIC DYSFUNCTION [None]
  - DIZZINESS [None]
  - DUODENAL ULCER [None]
  - DYSAESTHESIA [None]
  - DYSPEPSIA [None]
  - DYSPNOEA [None]
  - ELECTROCARDIOGRAM T WAVE INVERSION [None]
  - EMOTIONAL DISTRESS [None]
  - ERECTILE DYSFUNCTION [None]
  - EXOSTOSIS [None]
  - FLUID OVERLOAD [None]
  - GASTRITIS [None]
  - GASTROENTERITIS HELICOBACTER [None]
  - GASTROINTESTINAL DISORDER [None]
  - GASTROOESOPHAGEAL REFLUX DISEASE [None]
  - HAEMATEMESIS [None]
  - HAEMORRHAGE [None]
  - HAEMORRHOIDS [None]
  - HYPERCALCAEMIA [None]
  - HYPERLIPIDAEMIA [None]
  - HYPERPARATHYROIDISM [None]
  - HYPERTENSION [None]
  - INJURY [None]
  - INSOMNIA [None]
  - INTERVERTEBRAL DISC DEGENERATION [None]
  - IRRITABILITY [None]
  - LOCALISED INFECTION [None]
  - MEDIASTINITIS [None]
  - NAUSEA [None]
  - NECK PAIN [None]
  - NIGHT SWEATS [None]
  - OEDEMA PERIPHERAL [None]
  - PAIN IN EXTREMITY [None]
  - PERICARDIAL EFFUSION [None]
  - PERICARDITIS [None]
  - PHLEBOTHROMBOSIS [None]
  - PLANTAR FASCIITIS [None]
  - PLEURAL EFFUSION [None]
  - POSTOPERATIVE INFECTION [None]
  - POSTPERICARDIOTOMY SYNDROME [None]
  - PSEUDOPHAKIA [None]
  - SINUS BRADYCARDIA [None]
  - SPINAL COLUMN STENOSIS [None]
  - SPINAL OSTEOARTHRITIS [None]
  - STRESS [None]
  - TRICUSPID VALVE INCOMPETENCE [None]
  - ULNAR NERVE INJURY [None]
  - VENOUS THROMBOSIS LIMB [None]
  - VENTRICULAR HYPERTROPHY [None]
  - VOMITING [None]
  - WEIGHT DECREASED [None]
  - WEIGHT INCREASED [None]
  - WOUND SECRETION [None]
